FAERS Safety Report 16117180 (Version 1)
Quarter: 2019Q1

REPORT INFORMATION
  Report Type: Spontaneous
  Country: IT (occurrence: IT)
  Receive Date: 20190326
  Receipt Date: 20190326
  Transmission Date: 20190418
  Serious: Yes (Death)
  Sender: FDA-Public Use
  Company Number: IT-TEVA-2004R091633

PATIENT
  Age: 45 Year
  Sex: Female

DRUGS (21)
  1. CALCIUM LACTAT/CARBONATE [Suspect]
     Active Substance: CALCIUM CARBONATE
     Route: 065
     Dates: start: 20020927
  2. RABEPRAZOLE [Suspect]
     Active Substance: RABEPRAZOLE
     Route: 065
     Dates: end: 200209
  3. CALCITRIOL. [Suspect]
     Active Substance: CALCITRIOL
     Route: 065
     Dates: start: 20020927
  4. PANTOPRAZOLE [Suspect]
     Active Substance: PANTOPRAZOLE
     Indication: PROPHYLAXIS AGAINST GASTROINTESTINAL ULCER
     Route: 065
     Dates: start: 20021009
  5. METOCLOPRAMIDE. [Suspect]
     Active Substance: METOCLOPRAMIDE
     Route: 065
     Dates: end: 200209
  6. FLUDROCORTISONE [Suspect]
     Active Substance: FLUDROCORTISONE
     Route: 065
     Dates: start: 20020927
  7. FUROSEMIDE. [Suspect]
     Active Substance: FUROSEMIDE
     Route: 042
  8. CALCIUM LACTAT/CARBONATE [Suspect]
     Active Substance: CALCIUM CARBONATE
     Route: 065
     Dates: end: 200209
  9. NYSTATIN. [Suspect]
     Active Substance: NYSTATIN
     Route: 065
     Dates: end: 200209
  10. FUROSEMIDE. [Suspect]
     Active Substance: FUROSEMIDE
     Indication: OLIGURIA
     Route: 048
  11. HALOPERIDOL. [Suspect]
     Active Substance: HALOPERIDOL
     Route: 065
     Dates: start: 20021009
  12. NYSTATIN. [Suspect]
     Active Substance: NYSTATIN
     Route: 065
     Dates: start: 20020927
  13. LEVOFLOXACIN. [Suspect]
     Active Substance: LEVOFLOXACIN
     Indication: PNEUMONIA
     Route: 048
     Dates: start: 20021004
  14. CALCIUM GLUCONATE. [Suspect]
     Active Substance: CALCIUM GLUCONATE
     Indication: HYPOCALCAEMIA
     Route: 065
     Dates: start: 20021009
  15. OMEPRAZOLE. [Suspect]
     Active Substance: OMEPRAZOLE
     Route: 065
     Dates: start: 20020927
  16. DIAZEPAM. [Suspect]
     Active Substance: DIAZEPAM
     Route: 065
     Dates: start: 20021009
  17. CEFACLOR. [Suspect]
     Active Substance: CEFACLOR
     Indication: CYSTITIS
     Route: 065
     Dates: end: 200209
  18. CANRENOATE [Suspect]
     Active Substance: CANRENOIC ACID
     Indication: RENAL IMPAIRMENT
     Route: 065
     Dates: start: 20021027
  19. AMOXICILLIN + CLAVULANIC ACID [Suspect]
     Active Substance: AMOXICILLIN\CLAVULANIC ACID
     Indication: PNEUMONIA
     Dosage: 3600 MILLIGRAM DAILY;
     Route: 042
     Dates: start: 20021004, end: 20021019
  20. ALUMINIUM/MAGNESIUM HYDROXIDE [Suspect]
     Active Substance: ALUMINUM HYDROXIDE\MAGNESIUM HYDROXIDE
     Route: 065
     Dates: start: 20020927
  21. ITRACONAZOLE. [Suspect]
     Active Substance: ITRACONAZOLE
     Indication: ORAL CANDIDIASIS
     Dosage: 100 MILLIGRAM DAILY;
     Route: 065
     Dates: start: 20021009

REACTIONS (1)
  - Toxic epidermal necrolysis [Fatal]

NARRATIVE: CASE EVENT DATE: 20021101
